FAERS Safety Report 22136180 (Version 1)
Quarter: 2023Q1

REPORT INFORMATION
  Report Type: Spontaneous
  Country: FR (occurrence: FR)
  Receive Date: 20230324
  Receipt Date: 20230324
  Transmission Date: 20230417
  Serious: Yes (Hospitalization, Disabling)
  Sender: FDA-Public Use
  Company Number: FR-WARNER CHILCOTT-2013-000854

PATIENT
  Sex: Female
  Weight: 63 kg

DRUGS (7)
  1. ACTONEL [Suspect]
     Active Substance: RISEDRONATE SODIUM
     Indication: Autoimmune hepatitis
     Dosage: 35 MG, Q WEEK
     Route: 048
  2. CALCIUM\CHOLECALCIFEROL [Suspect]
     Active Substance: CALCIUM\CHOLECALCIFEROL
     Indication: Product used for unknown indication
     Dosage: 1 DOSE FORM (1000 MG/880 UI) DAILY
     Route: 048
  3. KARDEGIC [Suspect]
     Active Substance: ASPIRIN DL-LYSINE
     Indication: Thrombosis
     Dosage: 150 MG DAILY (TWO 75 MG SACHETS DAILY)
     Route: 048
     Dates: start: 201006, end: 20110421
  4. KARDEGIC [Suspect]
     Active Substance: ASPIRIN DL-LYSINE
     Dosage: UNK
     Route: 048
     Dates: start: 20110424
  5. AZATHIOPRINE [Suspect]
     Active Substance: AZATHIOPRINE
     Indication: Autoimmune hepatitis
     Dosage: 125 MG, QD
     Route: 048
     Dates: start: 2007
  6. ESOMEPRAZOLE MAGNESIUM [Suspect]
     Active Substance: ESOMEPRAZOLE MAGNESIUM
     Indication: Prophylaxis against gastrointestinal ulcer
     Dosage: 20 MG, QD
     Route: 048
  7. PREDNISOLONE [Suspect]
     Active Substance: PREDNISOLONE
     Indication: Autoimmune hepatitis
     Dosage: 10 MG, QD
     Route: 048

REACTIONS (9)
  - Eyelid haematoma [Recovering/Resolving]
  - Conjunctival oedema [Recovering/Resolving]
  - Ocular hypertension [Recovered/Resolved with Sequelae]
  - Retinal artery occlusion [Recovered/Resolved with Sequelae]
  - Blindness [Unknown]
  - Eye pain [Unknown]
  - Vision blurred [Unknown]
  - Conjunctival oedema [Recovering/Resolving]
  - Off label use [Unknown]

NARRATIVE: CASE EVENT DATE: 20110422
